FAERS Safety Report 4476860-5 (Version None)
Quarter: 2004Q4

REPORT INFORMATION
  Report Type: 
  Country: None (occurrence: None)
  Receive Date: 20041013
  Receipt Date: 20040930
  Transmission Date: 20050328
  Serious: Yes (Hospitalization)
  Sender: FDA-Public Use
  Company Number: 204462

PATIENT
  Age: 60 Year
  Sex: Female

DRUGS (5)
  1. AVONEX [Suspect]
     Indication: MULTIPLE SCLEROSIS
     Dosage: 30 MCG QW IM
     Route: 030
     Dates: start: 19990801
  2. OXYBUTYNIN [Concomitant]
  3. BACLOFEN [Concomitant]
  4. PAXIL [Concomitant]
  5. DIAZEPAM [Concomitant]

REACTIONS (5)
  - AREFLEXIA [None]
  - DECUBITUS ULCER [None]
  - IMMOBILE [None]
  - MUSCLE SPASTICITY [None]
  - URINARY TRACT INFECTION [None]
